FAERS Safety Report 10925961 (Version 1)
Quarter: 2015Q1

REPORT INFORMATION
  Report Type: Spontaneous
  Country: ES (occurrence: ES)
  Receive Date: 20150318
  Receipt Date: 20150318
  Transmission Date: 20150721
  Serious: Yes (Other)
  Sender: FDA-Public Use
  Company Number: ES-JNJFOC-20150309428

PATIENT

DRUGS (2)
  1. USTEKINUMAB [Suspect]
     Active Substance: USTEKINUMAB
     Indication: PSORIASIS
     Dosage: WEIGHING?100 KG.
     Route: 058
  2. USTEKINUMAB [Suspect]
     Active Substance: USTEKINUMAB
     Indication: PSORIASIS
     Dosage: WEIGHING?100 KG.
     Route: 058

REACTIONS (15)
  - Tooth abscess [Recovering/Resolving]
  - Influenza [Recovering/Resolving]
  - Chronic obstructive pulmonary disease [Recovering/Resolving]
  - Skin papilloma [Recovering/Resolving]
  - Pertussis [Recovering/Resolving]
  - Tonsillitis [Recovering/Resolving]
  - Cystitis klebsiella [Recovering/Resolving]
  - Intervertebral discitis [Recovered/Resolved]
  - Paronychia [Recovering/Resolving]
  - Adenocarcinoma of colon [Recovered/Resolved]
  - Polyarthritis [Recovered/Resolved]
  - Bronchitis [Recovering/Resolving]
  - Acarodermatitis [Recovering/Resolving]
  - Drug ineffective [Unknown]
  - Blepharitis [Unknown]
